FAERS Safety Report 10538748 (Version 1)
Quarter: 2014Q4

REPORT INFORMATION
  Report Type: Spontaneous
  Country: US (occurrence: US)
  Receive Date: 20141023
  Receipt Date: 20141023
  Transmission Date: 20150529
  Serious: Yes (Other)
  Sender: FDA-Public Use
  Company Number: US-ACTAVIS-2014-22374

PATIENT
  Age: 10 Year
  Sex: Female

DRUGS (2)
  1. KETOROLAC [Concomitant]
     Active Substance: KETOROLAC\KETOROLAC TROMETHAMINE
     Indication: PAIN
     Dosage: UNKNOWN - EVERY 6 HRS
     Route: 065
  2. DILAUDID [Suspect]
     Active Substance: HYDROMORPHONE HYDROCHLORIDE
     Indication: PAIN
     Dosage: UNKNOWN - INFUSION AND BOLUS
     Route: 042

REACTIONS (4)
  - Somnolence [Unknown]
  - Tearfulness [Unknown]
  - Constipation [Unknown]
  - Anxiety [Unknown]
